FAERS Safety Report 9397691 (Version 1)
Quarter: 2013Q3

REPORT INFORMATION
  Report Type: Spontaneous
  Country: US (occurrence: None)
  Receive Date: 20130711
  Receipt Date: 20130711
  Transmission Date: 20140515
  Serious: No
  Sender: FDA-Public Use
  Company Number: None

PATIENT
  Age: 51 Year
  Sex: Female

DRUGS (1)
  1. HUMIRA [Suspect]
     Indication: PSORIASIS
     Dosage: EVERY TWO WEEKS
     Route: 058
     Dates: start: 201107

REACTIONS (3)
  - Alopecia [None]
  - Alopecia [None]
  - Vulvovaginal pruritus [None]
